FAERS Safety Report 6879145-2 (Version None)
Quarter: 2010Q3

REPORT INFORMATION
  Report Type: 
  Country: None (occurrence: None)
  Receive Date: 20100728
  Receipt Date: 20100722
  Transmission Date: 20110219
  Serious: Yes (Hospitalization)
  Sender: FDA-Public Use
  Company Number: CA-SANOFI-AVENTIS-2010SA043326

PATIENT
  Age: 55 Year
  Sex: Male
  Weight: 104.5 kg

DRUGS (2)
  1. LANTUS [Suspect]
     Route: 058
     Dates: end: 20100719
  2. METFORMIN HCL [Concomitant]
     Dates: end: 20100719

REACTIONS (2)
  - HYPOGLYCAEMIA [None]
  - SKIN ULCER [None]
